FAERS Safety Report 5476401-X (Version None)
Quarter: 2007Q4

REPORT INFORMATION
  Report Type: 
  Country: None (occurrence: None)
  Receive Date: 20071003
  Receipt Date: 20070921
  Transmission Date: 20080405
  Serious: Yes (Other)
  Sender: FDA-Public Use
  Company Number: US-PFIZER INC-2007079628

PATIENT
  Sex: Female
  Weight: 57.727 kg

DRUGS (8)
  1. LYRICA [Suspect]
     Indication: FIBROMYALGIA
  2. LYRICA [Suspect]
     Indication: NEUROPATHY
  3. NEURONTIN [Suspect]
  4. CLONAZEPAM [Suspect]
     Indication: SLEEP DISORDER
  5. METHADONE HCL [Suspect]
     Indication: PAIN
  6. ULTRAM [Suspect]
  7. FOSAMAX [Concomitant]
  8. SOMA [Concomitant]

REACTIONS (6)
  - DIZZINESS [None]
  - DRY MOUTH [None]
  - IMPAIRED DRIVING ABILITY [None]
  - RASH [None]
  - SLEEP DISORDER [None]
  - TOOTH DISORDER [None]
